FAERS Safety Report 23516803 (Version 1)
Quarter: 2024Q1

REPORT INFORMATION
  Report Type: Report from Study
  Country: FR (occurrence: FR)
  Receive Date: 20240213
  Receipt Date: 20240213
  Transmission Date: 20240410
  Serious: Yes (Other)
  Sender: FDA-Public Use
  Company Number: FR-ASTELLAS-2024US003368

PATIENT
  Age: 72 Year
  Sex: Male

DRUGS (5)
  1. ENFORTUMAB VEDOTIN [Suspect]
     Active Substance: ENFORTUMAB VEDOTIN
     Indication: Transitional cell carcinoma
     Dosage: 1.25 MG/KG, CYCLIC (C1 D1) (TOTAL DOSE 120 MG), 4 VIALS
     Route: 065
     Dates: start: 20230314, end: 20230314
  2. ENFORTUMAB VEDOTIN [Suspect]
     Active Substance: ENFORTUMAB VEDOTIN
     Dosage: 1.05 MG/KG, CYCLIC (C1 D15) (TOTAL DOSE 100 MG), 4 VIALS
     Route: 065
     Dates: start: 20230328
  3. ENFORTUMAB VEDOTIN [Suspect]
     Active Substance: ENFORTUMAB VEDOTIN
     Dosage: 1.05 MG/KG, CYCLIC (C2 D1)(TOTAL DOSE 100 MG), 4 VIALS
     Route: 065
     Dates: start: 20230411
  4. ENFORTUMAB VEDOTIN [Suspect]
     Active Substance: ENFORTUMAB VEDOTIN
     Dosage: 1.05 MG/KG, CYCLIC (C2 D8) (TOTAL DOSE 100 MG), 4 VIALS
     Route: 065
     Dates: start: 20230418
  5. ENFORTUMAB VEDOTIN [Suspect]
     Active Substance: ENFORTUMAB VEDOTIN
     Dosage: UNK UNK, UNKNOWN FREQ.
     Route: 065
     Dates: end: 20230602

REACTIONS (5)
  - Diabetes mellitus inadequate control [Unknown]
  - Hyponatraemia [Unknown]
  - Eczema [Unknown]
  - Erythema [Unknown]
  - Skin plaque [Unknown]
